FAERS Safety Report 4339787-5 (Version None)
Quarter: 2004Q2

REPORT INFORMATION
  Report Type: 
  Country: None (occurrence: None)
  Receive Date: 20040414
  Receipt Date: 20040414
  Transmission Date: 20050107
  Serious: Yes (Hospitalization, Disabling)
  Sender: FDA-Public Use
  Company Number: None

PATIENT
  Age: 81 Year
  Weight: 63 kg

DRUGS (2)
  1. LOVENOX [Suspect]
     Indication: DEEP VENOUS THROMBOSIS PROPHYLAXIS
     Dosage: 40 MG DAILY
     Route: 058
     Dates: start: 20040220, end: 20040224
  2. WARFARIN SODIUM [Suspect]
     Indication: ATRIAL FIBRILLATION
     Dosage: 6 MG DAILY -NO ORAL
     Route: 048
     Dates: start: 20030224, end: 20040224

REACTIONS (12)
  - ANAEMIA [None]
  - CARDIAC FAILURE CONGESTIVE [None]
  - COMPRESSION FRACTURE [None]
  - CONDITION AGGRAVATED [None]
  - DECUBITUS ULCER [None]
  - HYPOAESTHESIA [None]
  - INTERNATIONAL NORMALISED RATIO DECREASED [None]
  - LUMBAR VERTEBRAL FRACTURE [None]
  - MONOPLEGIA [None]
  - PLEURAL EFFUSION [None]
  - SUBDURAL HAEMATOMA [None]
  - THORACIC VERTEBRAL FRACTURE [None]
